FAERS Safety Report 15290954 (Version 4)
Quarter: 2020Q4

REPORT INFORMATION
  Report Type: Report from Study
  Country: FR (occurrence: FR)
  Receive Date: 20180817
  Receipt Date: 20201104
  Transmission Date: 20210113
  Serious: Yes (Other)
  Sender: FDA-Public Use
  Company Number: FR-JAZZ-2018-FR-012283

PATIENT

DRUGS (12)
  1. AMOXICILLIN TRIHYDRATE [Concomitant]
     Active Substance: AMOXICILLIN
     Indication: INFECTION PROPHYLAXIS
     Dosage: UNK
     Route: 048
     Dates: start: 201706
  2. BACTRIM [Concomitant]
     Active Substance: SULFAMETHOXAZOLE\TRIMETHOPRIM
     Indication: INFECTION PROPHYLAXIS
     Dosage: UNK
     Route: 048
     Dates: start: 201706
  3. DEFITELIO [Suspect]
     Active Substance: DEFIBROTIDE SODIUM
     Indication: VENOOCCLUSIVE LIVER DISEASE
     Dosage: 23.2 MG/KG/DAY
     Route: 042
     Dates: start: 20170805, end: 20170817
  4. NOXAFIL [Concomitant]
     Active Substance: POSACONAZOLE
     Indication: ANTIFUNGAL PROPHYLAXIS
     Dosage: 300 MG, UNK
     Route: 048
     Dates: start: 20170811, end: 20171019
  5. XATRAL [ALFUZOSIN HYDROCHLORIDE] [Concomitant]
     Active Substance: ALFUZOSIN
     Indication: BK VIRUS INFECTION
     Dosage: 10 MILLIGRAM
     Route: 048
     Dates: start: 20170824, end: 201710
  6. DEFITELIO [Suspect]
     Active Substance: DEFIBROTIDE SODIUM
     Dosage: 12.6 MG/KG/DAY
     Route: 042
     Dates: start: 20170818, end: 20170825
  7. ROVALCYTE [Concomitant]
     Active Substance: VALGANCICLOVIR HYDROCHLORIDE
     Indication: CYTOMEGALOVIRUS INFECTION
     Dosage: UNK
     Dates: start: 20170728, end: 20170908
  8. CORTANCYL [Concomitant]
     Active Substance: PREDNISONE
     Indication: PROPHYLAXIS AGAINST GRAFT VERSUS HOST DISEASE
     Dosage: UNK
     Route: 048
     Dates: start: 20170805
  9. MOPRAL [OMEPRAZOLE] [Concomitant]
     Active Substance: OMEPRAZOLE
     Indication: GASTROOESOPHAGEAL REFLUX PROPHYLAXIS
     Dosage: 20 MG, UNK
     Route: 048
     Dates: start: 201706
  10. URSOLVAN [Concomitant]
     Active Substance: URSODIOL
     Indication: PROPHYLAXIS
     Dosage: 1.2 GRAM
     Route: 048
     Dates: start: 20170806
  11. LERCAN [Suspect]
     Active Substance: LERCANIDIPINE
     Indication: HYPERTENSION
     Dosage: 20 MG, UNK
     Route: 048
     Dates: start: 20170819, end: 20170901
  12. CERIS [Concomitant]
     Active Substance: TROSPIUM CHLORIDE
     Indication: BK VIRUS INFECTION
     Dosage: 20 MILLIGRAM
     Route: 048
     Dates: start: 20170824, end: 20171123

REACTIONS (4)
  - Off label use [Unknown]
  - Orthostatic hypotension [Recovered/Resolved]
  - Cystitis haemorrhagic [Recovered/Resolved]
  - Chronic graft versus host disease [Unknown]

NARRATIVE: CASE EVENT DATE: 201708
